FAERS Safety Report 7725288-0 (Version None)
Quarter: 2011Q3

REPORT INFORMATION
  Report Type: 
  Country: None (occurrence: None)
  Receive Date: 20110902
  Receipt Date: 20110825
  Transmission Date: 20111222
  Serious: No
  Sender: FDA-Public Use
  Company Number: US-BIOGENIDEC-2011BI032483

PATIENT
  Age: 48 Year
  Sex: Male

DRUGS (1)
  1. AVONEX [Suspect]
     Indication: MULTIPLE SCLEROSIS
     Route: 030
     Dates: start: 20110816

REACTIONS (5)
  - INJECTION SITE PAIN [None]
  - OROPHARYNGEAL PAIN [None]
  - MOBILITY DECREASED [None]
  - HEADACHE [None]
  - BODY TEMPERATURE INCREASED [None]
